FAERS Safety Report 11324631 (Version 1)
Quarter: 2015Q3

REPORT INFORMATION
  Report Type: Spontaneous
  Country: US (occurrence: US)
  Receive Date: 20150730
  Receipt Date: 20150730
  Transmission Date: 20151125
  Serious: No
  Sender: FDA-Public Use
  Company Number: US-009507513-1507USA011828

PATIENT
  Age: 75 Year
  Sex: Female

DRUGS (4)
  1. ASMANEX [Suspect]
     Active Substance: MOMETASONE FUROATE
     Indication: ASTHMA
     Dosage: 220 MICROGRAM INHALATION/ TWICE DAILY (BID)
     Route: 055
     Dates: start: 20150708, end: 20150721
  2. SEREVENT DISKUS [Concomitant]
     Active Substance: SALMETEROL XINAFOATE
  3. LUMIGAN [Concomitant]
     Active Substance: BIMATOPROST
  4. SALCATONIN [Concomitant]
     Active Substance: CALCITONIN SALMON

REACTIONS (1)
  - Chest pain [Recovered/Resolved]

NARRATIVE: CASE EVENT DATE: 20150712
